FAERS Safety Report 11393683 (Version 1)
Quarter: 2015Q3

REPORT INFORMATION
  Report Type: Spontaneous
  Country: US (occurrence: US)
  Receive Date: 20150819
  Receipt Date: 20150819
  Transmission Date: 20151125
  Serious: Yes (Other)
  Sender: FDA-Public Use
  Company Number: US-BRISTOL-MYERS SQUIBB COMPANY-BMS-2015-053605

PATIENT
  Age: 26 Year
  Sex: Female

DRUGS (3)
  1. ABILIFY [Suspect]
     Active Substance: ARIPIPRAZOLE
     Indication: SCHIZOPHRENIA
     Dosage: 5 MG, UNK
     Route: 065
     Dates: start: 20150705, end: 201508
  2. SYNTHROID [Concomitant]
     Active Substance: LEVOTHYROXINE SODIUM
     Indication: PRODUCT USED FOR UNKNOWN INDICATION
     Route: 065
  3. ABILIFY [Suspect]
     Active Substance: ARIPIPRAZOLE
     Dosage: 10 MG, UNK
     Route: 065

REACTIONS (9)
  - Anxiety [Unknown]
  - Depression [Unknown]
  - Thinking abnormal [Unknown]
  - Headache [Unknown]
  - Tremor [Unknown]
  - Gait disturbance [Unknown]
  - Obsessive-compulsive disorder [Unknown]
  - Wrong technique in product usage process [Unknown]
  - Asperger^s disorder [Unknown]

NARRATIVE: CASE EVENT DATE: 2015
